FAERS Safety Report 20667707 (Version 2)
Quarter: 2022Q2

REPORT INFORMATION
  Report Type: Spontaneous
  Country: HU (occurrence: HU)
  Receive Date: 20220404
  Receipt Date: 20220529
  Transmission Date: 20220720
  Serious: Yes (Death, Other)
  Sender: FDA-Public Use
  Company Number: HU-SA-SAC20220331001477

PATIENT
  Age: 63 Year
  Sex: Female

DRUGS (1)
  1. FABRAZYME [Suspect]
     Active Substance: AGALSIDASE BETA
     Indication: Fabry^s disease
     Dosage: UNK
     Dates: start: 2017, end: 20220307

REACTIONS (7)
  - Multiple organ dysfunction syndrome [Fatal]
  - Sepsis [Fatal]
  - Lung neoplasm malignant [Fatal]
  - Pneumonia [Fatal]
  - Chronic obstructive pulmonary disease [Fatal]
  - Bronchitis [Fatal]
  - COVID-19 [Fatal]

NARRATIVE: CASE EVENT DATE: 20220205
